FAERS Safety Report 9278064 (Version 3)
Quarter: 2014Q1

REPORT INFORMATION
  Report Type: Spontaneous
  Country: US (occurrence: US)
  Receive Date: 20130508
  Receipt Date: 20140213
  Transmission Date: 20141002
  Serious: Yes (Other)
  Sender: FDA-Public Use
  Company Number: US-PFIZER INC-2013141454

PATIENT
  Age: 83 Year
  Sex: Female

DRUGS (18)
  1. LYRICA [Suspect]
     Dosage: UNK
  2. LYRICA [Suspect]
     Dosage: 75 MG, 2X/DAY
     Route: 048
  3. GLIPIZIDE [Concomitant]
     Dosage: 5 MG, DAILY
  4. HYDROCHLOROTHIAZIDE [Concomitant]
     Dosage: 12.5 MG, DAILY IN AM
  5. NORVASC [Concomitant]
     Dosage: UNK
  6. PREDNISONE [Concomitant]
     Dosage: 1 MG, DAILY
  7. BENAZEPRIL [Concomitant]
     Dosage: 20 MG, DAILY
  8. SIMVASTATIN [Concomitant]
     Dosage: 40 MG, DAILY IN THE EVENING
  9. SYNTHROID [Concomitant]
     Dosage: UNK
  10. AMLODIPINE BESYLATE [Concomitant]
     Dosage: 2.5 MG, DAILY
  11. ACETYLSALICYLIC ACID [Concomitant]
     Dosage: 81 MG, DAILY
  12. FENTANYL [Concomitant]
     Dosage: 25MCG/H- CHANGE EVERY 72 HRS
  13. LEVOTHYROXINE [Concomitant]
     Dosage: 75 UG, DAILY
  14. TEMAZEPAM [Concomitant]
     Dosage: 15 MG, AS NEEDED (AT BEDTIME)
  15. CENTRUM SILVER [Concomitant]
     Dosage: 1 DF, DAILY
  16. VITAMIN B12 [Concomitant]
     Dosage: 1000 UG, DAILY
  17. VITAMIN D3 [Concomitant]
     Dosage: 1000 IU, DAILY
  18. SYSTANE [Concomitant]
     Dosage: 2 GTT (EACH EYE), 2X/DAY
     Route: 047

REACTIONS (2)
  - Fractured coccyx [Unknown]
  - Accident [Unknown]
